FAERS Safety Report 10308519 (Version 1)
Quarter: 2014Q3

REPORT INFORMATION
  Report Type: Spontaneous
  Country: TR (occurrence: TR)
  Receive Date: 20140716
  Receipt Date: 20140716
  Transmission Date: 20150326
  Serious: Yes (Other)
  Sender: FDA-Public Use
  Company Number: CHPA2014TR009427

PATIENT
  Age: 3 Year
  Sex: Male

DRUGS (1)
  1. TRIAMINIC COLD + COUGH CHERRY [Suspect]
     Active Substance: CHLORPHENIRAMINE MALEATE\DEXTROMETHORPHAN HYDROBROMIDE\PSEUDOEPHEDRINE HYDROCHLORIDE
     Route: 048

REACTIONS (3)
  - Rash [Recovered/Resolved]
  - Drug eruption [None]
  - Dermatitis contact [Recovered/Resolved]
